FAERS Safety Report 7530754-7 (Version None)
Quarter: 2011Q2

REPORT INFORMATION
  Report Type: 
  Country: None (occurrence: None)
  Receive Date: 20110607
  Receipt Date: 20110531
  Transmission Date: 20111010
  Serious: Yes (Other)
  Sender: FDA-Public Use
  Company Number: US-ABBOTT-11P-163-0729959-00

PATIENT
  Sex: Female
  Weight: 54.934 kg

DRUGS (1)
  1. HUMIRA [Suspect]
     Indication: RHEUMATOID ARTHRITIS
     Route: 058
     Dates: start: 20090201, end: 20110501

REACTIONS (7)
  - INTESTINAL PERFORATION [None]
  - DIVERTICULITIS [None]
  - ABSCESS [None]
  - ARTHRALGIA [None]
  - GASTRIC POLYPS [None]
  - HAEMATOCHEZIA [None]
  - OESOPHAGEAL PERFORATION [None]
